FAERS Safety Report 9319793 (Version 1)
Quarter: 2013Q2

REPORT INFORMATION
  Report Type: Spontaneous
  Country: US (occurrence: US)
  Receive Date: 20130530
  Receipt Date: 20130530
  Transmission Date: 20140414
  Serious: No
  Sender: FDA-Public Use
  Company Number: US-009507513-1303USA013948

PATIENT
  Sex: Female

DRUGS (3)
  1. MIRALAX [Suspect]
     Indication: CONSTIPATION
     Dosage: UNK, QD
     Route: 048
  2. MIRALAX [Suspect]
     Indication: MEDICAL OBSERVATION
  3. KEFLEX [Suspect]
     Indication: NASOPHARYNGITIS
     Dosage: UNK, UNKNOWN

REACTIONS (1)
  - Limb discomfort [Recovered/Resolved]
